FAERS Safety Report 6291635-2 (Version None)
Quarter: 2009Q3

REPORT INFORMATION
  Report Type: 
  Country: None (occurrence: None)
  Receive Date: 20090730
  Receipt Date: 20090722
  Transmission Date: 20100115
  Serious: Yes (Other)
  Sender: FDA-Public Use
  Company Number: US-ASTRAZENECA-2009SE05577

PATIENT
  Age: 6 Week

DRUGS (1)
  1. EMLA [Suspect]
     Route: 061

REACTIONS (2)
  - CYANOSIS [None]
  - LETHARGY [None]
